FAERS Safety Report 8516600-3 (Version None)
Quarter: 2012Q3

REPORT INFORMATION
  Report Type: 
  Country: None (occurrence: None)
  Receive Date: 20120718
  Receipt Date: 20120712
  Transmission Date: 20120928
  Serious: Yes (Life-Threatening, Hospitalization, Other)
  Sender: FDA-Public Use
  Company Number: JP-AMGEN-JPNSP2012025176

PATIENT
  Age: 52 Year
  Sex: Female
  Weight: 49 kg

DRUGS (6)
  1. RHEUMATREX [Suspect]
     Indication: RHEUMATOID ARTHRITIS
     Dosage: 8 MG, WEEKLY
     Route: 048
     Dates: start: 20101023
  2. RHEUMATREX [Suspect]
     Dosage: 10 MG, WEEKLY
     Route: 048
     Dates: start: 20110919, end: 20110926
  3. RHEUMATREX [Suspect]
     Dosage: 8 MG, WEEKLY
     Dates: start: 20110926, end: 20120414
  4. RHEUMATREX [Suspect]
     Indication: RHEUMATOID ARTHRITIS
     Dosage: 6 MG, WEEKLY
     Route: 048
     Dates: end: 20120401
  5. ENBREL [Suspect]
     Indication: RHEUMATOID ARTHRITIS
     Dosage: 50 MG, WEEKLY
     Route: 058
     Dates: start: 20111001, end: 20120401
  6. ENBREL [Suspect]
     Dosage: 50 MG, WEEKLY
     Route: 058
     Dates: start: 20110926, end: 20120414

REACTIONS (1)
  - LYMPHOMA [None]
